FAERS Safety Report 8396825-0 (Version None)
Quarter: 2012Q2

REPORT INFORMATION
  Report Type: 
  Country: None (occurrence: None)
  Receive Date: 20120530
  Receipt Date: 20120514
  Transmission Date: 20120825
  Serious: No
  Sender: FDA-Public Use
  Company Number: US-ASTRAZENECA-2012SE31038

PATIENT
  Age: 30 Year
  Sex: Female
  Weight: 68.9 kg

DRUGS (2)
  1. ZOMIG [Concomitant]
     Indication: MIGRAINE
  2. TENORMIN [Suspect]
     Route: 048

REACTIONS (2)
  - MULTIPLE ALLERGIES [None]
  - DRUG INTOLERANCE [None]
